FAERS Safety Report 8515461-6 (Version None)
Quarter: 2012Q3

REPORT INFORMATION
  Report Type: 
  Country: None (occurrence: None)
  Receive Date: 20120717
  Receipt Date: 20120706
  Transmission Date: 20120928
  Serious: Yes (Other)
  Sender: FDA-Public Use
  Company Number: US-ELI_LILLY_AND_COMPANY-US201207002992

PATIENT
  Sex: Male

DRUGS (6)
  1. LANTUS [Concomitant]
     Dosage: UNK, EACH EVENING
  2. HUMALOG [Suspect]
     Indication: DIABETES MELLITUS
     Dosage: 12 U, PRN
  3. ANTIHYPERTENSIVES [Concomitant]
  4. GLYBURIDE [Concomitant]
  5. HUMALOG [Suspect]
     Dosage: 12 U, PRN
  6. METFORMIN HYDROCHLORIDE [Concomitant]

REACTIONS (9)
  - DIPLOPIA [None]
  - BLOOD GLUCOSE INCREASED [None]
  - DRUG INEFFECTIVE [None]
  - PARAESTHESIA [None]
  - VISUAL IMPAIRMENT [None]
  - VIITH NERVE PARALYSIS [None]
  - EYE DISORDER [None]
  - TONGUE PARALYSIS [None]
  - CEREBROVASCULAR ACCIDENT [None]
